FAERS Safety Report 5894752-1 (Version None)
Quarter: 2008Q3

REPORT INFORMATION
  Report Type: 
  Country: None (occurrence: None)
  Receive Date: 20080924
  Receipt Date: 20080613
  Transmission Date: 20090109
  Serious: No
  Sender: FDA-Public Use
  Company Number: US-ASTRAZENECA-2008UW12004

PATIENT
  Age: 77 Year
  Sex: Female
  Weight: 72.6 kg

DRUGS (3)
  1. SEROQUEL [Suspect]
     Indication: BIPOLAR DISORDER
     Route: 048
     Dates: start: 20080612
  2. SINEMET [Concomitant]
  3. ZOCOR [Concomitant]

REACTIONS (2)
  - DISORIENTATION [None]
  - HYPERSOMNIA [None]
